FAERS Safety Report 7512782-0 (Version None)
Quarter: 2011Q2

REPORT INFORMATION
  Report Type: 
  Country: None (occurrence: None)
  Receive Date: 20110531
  Receipt Date: 20110519
  Transmission Date: 20111010
  Serious: Yes (Hospitalization)
  Sender: FDA-Public Use
  Company Number: B0713342A

PATIENT
  Sex: Female
  Weight: 150 kg

DRUGS (7)
  1. NOMEGESTROL [Concomitant]
     Dosage: 10MG PER DAY
     Route: 048
  2. ARIXTRA [Suspect]
     Indication: DEEP VEIN THROMBOSIS
     Dosage: 10MG PER DAY
     Route: 058
     Dates: start: 20110402, end: 20110408
  3. INNOHEP [Suspect]
     Indication: DEEP VEIN THROMBOSIS
     Dosage: 1UNIT PER DAY
     Route: 058
     Dates: start: 20110409, end: 20110410
  4. ADHESIVE TAPE [Suspect]
  5. SINGULAIR [Concomitant]
     Dosage: 1UNIT PER DAY
     Route: 048
  6. MODAFINIL [Concomitant]
     Dosage: 100MG TWICE PER DAY
     Route: 048
  7. LEVOTHYROXINE SODIUM [Concomitant]
     Dosage: 100MCG PER DAY
     Route: 048

REACTIONS (5)
  - HYPERSENSITIVITY [None]
  - RASH [None]
  - SKIN LESION [None]
  - PURPURA [None]
  - PAIN IN EXTREMITY [None]
